FAERS Safety Report 8556792-3 (Version None)
Quarter: 2012Q3

REPORT INFORMATION
  Report Type: 
  Country: None (occurrence: None)
  Receive Date: 20120726
  Receipt Date: 20120726
  Transmission Date: 20120928
  Serious: Yes (Other)
  Sender: FDA-Public Use
  Company Number: None

PATIENT
  Age: 43 Year
  Sex: Female
  Weight: 72.5755 kg

DRUGS (1)
  1. CIPROFLOXACIN [Suspect]
     Indication: BACTERIAL FOOD POISONING
     Dosage: 1, ONCE DAILY, PO
     Route: 048
     Dates: start: 20120723, end: 20120724

REACTIONS (2)
  - ARTHRALGIA [None]
  - ABASIA [None]
